FAERS Safety Report 8863024 (Version 1)
Quarter: 2012Q4

REPORT INFORMATION
  Report Type: Report from Study
  Country: DE (occurrence: JP)
  Receive Date: 20121026
  Receipt Date: 20121026
  Transmission Date: 20130627
  Serious: Yes (Other)
  Sender: FDA-Public Use
  Company Number: JP-BRISTOL-MYERS SQUIBB COMPANY-17041070

PATIENT
  Age: 70 Year
  Sex: Male
  Weight: 56 kg

DRUGS (9)
  1. ERBITUX SOLN FOR INF 5MG/ML [Suspect]
     Indication: COLON CANCER
     Dosage: 600MG:15-15oCT2008
380MG:22Oct-05Dec2008
     Route: 041
     Dates: start: 20081015, end: 20081205
  2. POLARAMINE [Concomitant]
     Indication: PREMEDICATION
     Route: 042
     Dates: start: 20081015
  3. DECADRON [Concomitant]
     Indication: PREMEDICATION
     Route: 042
     Dates: start: 20081015
  4. OXYCONTIN [Concomitant]
     Indication: CANCER PAIN
     Route: 048
     Dates: start: 20081015
  5. MOBIC [Concomitant]
     Indication: CANCER PAIN
     Dosage: tabs.
     Route: 048
     Dates: start: 20081015
  6. FAMOTIDINE TABS [Concomitant]
     Indication: PROPHYLAXIS
     Route: 048
     Dates: start: 20081015
  7. MEDICON [Concomitant]
     Indication: ANTITUSSIVE THERAPY
     Dosage: tabs.
     Route: 048
     Dates: start: 20081015
  8. CONSTAN [Concomitant]
     Indication: ANXIETY
     Route: 048
     Dates: start: 20081128
  9. MAGLAX [Concomitant]
     Indication: CONSTIPATION
     Dosage: tabs.
     Route: 048
     Dates: start: 20081128

REACTIONS (8)
  - Pneumomediastinum [Recovered/Resolved]
  - Dizziness [Recovered/Resolved]
  - Dermatitis acneiform [Recovering/Resolving]
  - Skin reaction [Recovered/Resolved]
  - Nausea [Recovering/Resolving]
  - Decreased appetite [Not Recovered/Not Resolved]
  - Headache [Recovered/Resolved]
  - Dyspnoea [Not Recovered/Not Resolved]
